FAERS Safety Report 13106874 (Version 1)
Quarter: 2017Q1

REPORT INFORMATION
  Report Type: Spontaneous
  Country: US (occurrence: US)
  Receive Date: 20170111
  Receipt Date: 20170111
  Transmission Date: 20170428
  Serious: No
  Sender: FDA-Public Use
  Company Number: US-SIGMAPHARM LABORATORIES, LLC-2016SIG00009

PATIENT
  Sex: Female

DRUGS (3)
  1. LIOTHYRONINE SODIUM. [Suspect]
     Active Substance: LIOTHYRONINE SODIUM
     Dosage: 10 MCG, 1X/DAY
     Dates: start: 201602
  2. LIOTHYRONINE SODIUM. [Suspect]
     Active Substance: LIOTHYRONINE SODIUM
     Indication: HYPOTHYROIDISM
     Dosage: 25 MCG, 1X/DAY
     Route: 048
     Dates: start: 201602
  3. LIOTHYRONINE SODIUM. [Suspect]
     Active Substance: LIOTHYRONINE SODIUM
     Dosage: 20 MCG, 1X/DAY
     Dates: start: 201602

REACTIONS (13)
  - Tachycardia [Unknown]
  - Blood thyroid stimulating hormone decreased [Unknown]
  - Fatigue [Not Recovered/Not Resolved]
  - Depression [Unknown]
  - Peripheral coldness [Not Recovered/Not Resolved]
  - Mental impairment [Unknown]
  - Weight increased [Unknown]
  - Aphasia [Not Recovered/Not Resolved]
  - Heart rate decreased [Not Recovered/Not Resolved]
  - Mental status changes [Not Recovered/Not Resolved]
  - Peripheral swelling [Unknown]
  - Tri-iodothyronine free decreased [Unknown]
  - Thyroxine decreased [Unknown]

NARRATIVE: CASE EVENT DATE: 201602
